FAERS Safety Report 5629358-2 (Version None)
Quarter: 2008Q1

REPORT INFORMATION
  Report Type: 
  Country: None (occurrence: None)
  Receive Date: 20080218
  Receipt Date: 20080206
  Transmission Date: 20080703
  Serious: Yes (Hospitalization)
  Sender: FDA-Public Use
  Company Number: PT-ELI_LILLY_AND_COMPANY-PT200801006078

PATIENT
  Age: 43 Year
  Sex: Male

DRUGS (3)
  1. OLANZAPINE [Suspect]
     Indication: PSYCHOMOTOR HYPERACTIVITY
     Dosage: 15 MG, 2/D
     Route: 048
     Dates: start: 20080104, end: 20080107
  2. DIAZEPAM [Concomitant]
     Indication: PSYCHOMOTOR HYPERACTIVITY
     Route: 048
     Dates: start: 20080104, end: 20080107
  3. NOZINAN [Concomitant]
     Indication: PSYCHOMOTOR HYPERACTIVITY
     Route: 048
     Dates: start: 20080104, end: 20080107

REACTIONS (3)
  - HYPOTENSION [None]
  - HYPOTHERMIA [None]
  - TRACHEOBRONCHITIS [None]
